FAERS Safety Report 9100718 (Version 1)
Quarter: 2013Q1

REPORT INFORMATION
  Report Type: Spontaneous
  Country: SE (occurrence: SE)
  Receive Date: 20130215
  Receipt Date: 20130215
  Transmission Date: 20140127
  Serious: Yes (Other)
  Sender: FDA-Public Use
  Company Number: SE-009507513-1302SWE005566

PATIENT
  Age: 79 Year
  Sex: Female

DRUGS (9)
  1. FOSAMAX VECKOTABLETT 70 MG ABLETTER [Suspect]
     Indication: OSTEOPOROSIS
     Dosage: UNK, QW
     Route: 048
     Dates: start: 20100601, end: 20110216
  2. ALENDRONATE SODIUM [Suspect]
     Indication: OSTEOPOROSIS
     Dosage: UNK, QW
     Route: 048
     Dates: start: 20110216, end: 20120101
  3. SYMBICORT TURBUHALER [Concomitant]
  4. SPIRIVA [Concomitant]
  5. ATACAND [Concomitant]
  6. MAGNECYL-CAFFEINE [Concomitant]
  7. CARDIZEM [Concomitant]
  8. ATENOLOL [Concomitant]
  9. XERODENT [Concomitant]

REACTIONS (2)
  - Osteonecrosis [Not Recovered/Not Resolved]
  - Sensory disturbance [Not Recovered/Not Resolved]
